FAERS Safety Report 24604754 (Version 2)
Quarter: 2024Q4

REPORT INFORMATION
  Report Type: Spontaneous
  Country: US (occurrence: US)
  Receive Date: 20241111
  Receipt Date: 20241209
  Transmission Date: 20250114
  Serious: Yes (Hospitalization)
  Sender: ELI LILLY AND COMPANY
  Company Number: US-ELI_LILLY_AND_COMPANY-US202411005147

PATIENT
  Age: 62 Year
  Sex: Female
  Weight: 40.6 kg

DRUGS (23)
  1. VERZENIO [Suspect]
     Active Substance: ABEMACICLIB
     Indication: Breast cancer female
     Dosage: 150 MG, BID
     Route: 048
     Dates: start: 20240529, end: 20241004
  2. VERZENIO [Suspect]
     Active Substance: ABEMACICLIB
     Dosage: 50 MG, UNKNOWN
     Route: 048
  3. VERZENIO [Suspect]
     Active Substance: ABEMACICLIB
     Dosage: 100 MG, UNKNOWN
     Route: 048
  4. EXEMESTANE [Concomitant]
     Active Substance: EXEMESTANE
     Indication: Breast cancer
     Dosage: 25 MG, DAILY
     Route: 065
     Dates: start: 20241105
  5. ELIQUIS [Concomitant]
     Active Substance: APIXABAN
     Indication: Pulmonary embolism
     Dosage: 5 MG, BID
     Dates: start: 20241105
  6. OXYCODONE [Concomitant]
     Active Substance: OXYCODONE
     Indication: Product used for unknown indication
     Dosage: 5 MG, DAILY
  7. BERBERINE [Concomitant]
     Active Substance: BERBERINE
     Indication: Product used for unknown indication
     Dosage: 500 MG, BID
     Dates: end: 20241003
  8. CITRUS BERGAMOT SUPERFRUIT MEGA+O [Concomitant]
     Indication: Product used for unknown indication
     Dosage: 500 MG, DAILY
     Dates: start: 20241003
  9. ASTRAGALUS 6000 [Concomitant]
     Indication: Product used for unknown indication
     Dosage: 1000 MG, DAILY
     Dates: start: 20241004
  10. QUERCETIN [Concomitant]
     Active Substance: QUERCETIN
     Indication: Product used for unknown indication
     Dosage: 500 MG, DAILY
     Dates: start: 20241004
  11. URSOLIC ACID [Concomitant]
     Active Substance: URSOLIC ACID
     Indication: Product used for unknown indication
     Dosage: 50 MG, DAILY
     Dates: start: 20241004
  12. DIETARY SUPPLEMENT\HERBALS\INDIAN FRANKINCENSE [Concomitant]
     Active Substance: DIETARY SUPPLEMENT\HERBALS\INDIAN FRANKINCENSE
     Indication: Product used for unknown indication
     Dosage: 500 MG, DAILY
     Dates: start: 20241007
  13. CIMETIDINE [Concomitant]
     Active Substance: CIMETIDINE
     Indication: Product used for unknown indication
     Dosage: 200 MG, DAILY
     Dates: start: 20241007
  14. LORATADINE [Concomitant]
     Active Substance: LORATADINE
     Indication: Product used for unknown indication
     Dosage: 10 MG, DAILY
     Dates: start: 20241007
  15. LUTEOLIN [Concomitant]
     Active Substance: LUTEOLIN
     Indication: Product used for unknown indication
     Dosage: 100 MG, DAILY
     Dates: start: 20241007
  16. MAGNESIUM [Concomitant]
     Active Substance: MAGNESIUM
     Indication: Product used for unknown indication
     Dosage: 125 MG, DAILY
     Dates: start: 20241007
  17. OMEGA-3 FATTY ACIDS [Concomitant]
     Active Substance: OMEGA-3 FATTY ACIDS
     Indication: Product used for unknown indication
     Dosage: 360 MG, BID
     Dates: start: 20241007
  18. R ALPHA LIPONSAEURE [Concomitant]
     Indication: Product used for unknown indication
     Dosage: 240 MG, DAILY
     Dates: start: 20241007
  19. SEA BUCKTHORN OIL [Concomitant]
     Indication: Product used for unknown indication
     Dosage: 250 MG, DAILY
     Dates: start: 20241007
  20. VITAMIN B6 [Concomitant]
     Active Substance: PYRIDOXINE HYDROCHLORIDE
     Indication: Product used for unknown indication
     Dosage: 100 MG, DAILY
     Dates: start: 20241007
  21. VITAMIN D3 [Concomitant]
     Active Substance: CHOLECALCIFEROL
     Indication: Product used for unknown indication
     Dosage: 125 MG, DAILY
     Dates: start: 20241007
  22. VITAMIN E [TOCOPHEROLS MIXED;TOCOTRIENOLS NOS [Concomitant]
     Indication: Product used for unknown indication
     Dosage: 125 MG, DAILY
     Dates: start: 20241007
  23. MELATONIN [Concomitant]
     Active Substance: MELATONIN
     Indication: Product used for unknown indication
     Dosage: 10 MG, DAILY

REACTIONS (1)
  - Drug-induced liver injury [Recovered/Resolved with Sequelae]

NARRATIVE: CASE EVENT DATE: 20240821
